FAERS Safety Report 5965213-6 (Version None)
Quarter: 2008Q4

REPORT INFORMATION
  Report Type: 
  Country: None (occurrence: None)
  Receive Date: 20081121
  Receipt Date: 20081121
  Transmission Date: 20090506
  Serious: Yes (Other)
  Sender: FDA-Public Use
  Company Number: None

PATIENT
  Age: 18 Year
  Sex: Female
  Weight: 53.5244 kg

DRUGS (1)
  1. YAZ [Suspect]

REACTIONS (7)
  - ACTIVITIES OF DAILY LIVING IMPAIRED [None]
  - EDUCATIONAL PROBLEM [None]
  - FEELING ABNORMAL [None]
  - MOOD SWINGS [None]
  - PANIC ATTACK [None]
  - PERSONALITY CHANGE [None]
  - STRESS [None]
